FAERS Safety Report 9255957 (Version 1)
Quarter: 2013Q2

REPORT INFORMATION
  Report Type: Spontaneous
  Country: DE (occurrence: DE)
  Receive Date: 20130425
  Receipt Date: 20130425
  Transmission Date: 20140414
  Serious: Yes (Hospitalization)
  Sender: FDA-Public Use
  Company Number: GXKR2013DE001597

PATIENT
  Sex: 0

DRUGS (3)
  1. VENLAFAXINE [Suspect]
     Dosage: 150 MG/DAY
     Route: 048
     Dates: start: 201110, end: 20121115
  2. VENLAFAXINE [Suspect]
     Dosage: 75 MG/DAY
     Route: 048
     Dates: start: 20121116, end: 20121118
  3. VENLAFAXINE [Suspect]
     Dosage: 37.5 MG/DAY
     Route: 048
     Dates: start: 20121119, end: 20121202

REACTIONS (1)
  - Gingival bleeding [Recovered/Resolved]
